FAERS Safety Report 8602472-5 (Version None)
Quarter: 2012Q3

REPORT INFORMATION
  Report Type: 
  Country: None (occurrence: None)
  Receive Date: 20120817
  Receipt Date: 20120814
  Transmission Date: 20120928
  Serious: Yes (Death)
  Sender: FDA-Public Use
  Company Number: US-AMGEN-USASP2011018216

PATIENT
  Age: 71 Year
  Sex: Female

DRUGS (3)
  1. XGEVA [Suspect]
     Indication: PRODUCT USED FOR UNKNOWN INDICATION
     Dosage: UNK
  2. NAVELBINE [Concomitant]
     Dosage: UNK
  3. NEUPOGEN [Suspect]
     Indication: CHEMOTHERAPY
     Dosage: UNK
     Dates: start: 20110131, end: 20110610

REACTIONS (3)
  - BREAST CANCER METASTATIC [None]
  - URTICARIA [None]
  - ARTHROPOD BITE [None]
